FAERS Safety Report 17165963 (Version 1)
Quarter: 2019Q4

REPORT INFORMATION
  Report Type: Spontaneous
  Country: US (occurrence: US)
  Receive Date: 20191217
  Receipt Date: 20191217
  Transmission Date: 20200122
  Serious: Yes (Hospitalization)
  Sender: FDA-Public Use
  Company Number: US-ASTRAZENECA-2019SF80781

PATIENT
  Sex: Male

DRUGS (9)
  1. FEROSUL [Concomitant]
     Active Substance: FERROUS SULFATE
     Dosage: ELX 220/5ML
  2. SYNAGIS [Suspect]
     Active Substance: PALIVIZUMAB
     Indication: BRONCHOPULMONARY DYSPLASIA
     Dosage: 100MG/ML MONTHLY
     Route: 030
     Dates: start: 20191210
  3. DIURIL [Concomitant]
     Active Substance: CHLOROTHIAZIDE
     Dosage: SUS 250/5ML
  4. ZANTAC [Concomitant]
     Active Substance: RANITIDINE HYDROCHLORIDE
  5. ALDACTONE [Concomitant]
     Active Substance: SPIRONOLACTONE
  6. ZANTAC [Concomitant]
     Active Substance: RANITIDINE HYDROCHLORIDE
  7. PULMICORT TURBUHALER [Suspect]
     Active Substance: BUDESONIDE
     Dosage: 1MG/2ML
     Route: 055
  8. POLY GLYCOL [Concomitant]
     Dosage: 1450
  9. SODIUM POW CHLORIDE [Concomitant]

REACTIONS (1)
  - Viral infection [Not Recovered/Not Resolved]
